FAERS Safety Report 24056555 (Version 1)
Quarter: 2024Q3

REPORT INFORMATION
  Report Type: Spontaneous
  Country: FR (occurrence: FR)
  Receive Date: 20240705
  Receipt Date: 20240705
  Transmission Date: 20241016
  Serious: Yes (Death, Congenital Anomaly, Other)
  Sender: PFIZER
  Company Number: None

PATIENT
  Sex: Male
  Weight: 0.456 kg

DRUGS (3)
  1. TUKYSA [Suspect]
     Active Substance: TUCATINIB
     Indication: Breast cancer
     Dosage: DOSE NOT REPORTED
     Route: 064
     Dates: start: 2020
  2. TRASTUZUMAB [Suspect]
     Active Substance: TRASTUZUMAB
     Indication: Breast cancer
     Dosage: DOSE NOT REPORTED
     Route: 064
     Dates: start: 2020
  3. CAPECITABINE [Suspect]
     Active Substance: CAPECITABINE
     Indication: Breast cancer
     Dosage: DOSE NOT REPORTED
     Route: 064
     Dates: start: 2020

REACTIONS (7)
  - Nose deformity [Fatal]
  - Dysmorphism [Fatal]
  - Ear malformation [Fatal]
  - Polydactyly [Fatal]
  - Congenital pulmonary airway malformation [Fatal]
  - Hypertelorism [Fatal]
  - Maternal exposure during pregnancy [Fatal]
